FAERS Safety Report 20447015 (Version 2)
Quarter: 2025Q3

REPORT INFORMATION
  Report Type: Spontaneous
  Country: EU (occurrence: EU)
  Receive Date: 20220209
  Receipt Date: 20250722
  Transmission Date: 20251021
  Serious: Yes (Other)
  Sender: AUROBINDO
  Company Number: EU-GLPHARMA-22.0042

PATIENT
  Age: 33 Year
  Sex: Female

DRUGS (1)
  1. ANASTROZOLE [Suspect]
     Active Substance: ANASTROZOLE
     Indication: Product used for unknown indication
     Route: 065
     Dates: start: 2017, end: 201903

REACTIONS (2)
  - Metastases to bone [Unknown]
  - Disease progression [Unknown]

NARRATIVE: CASE EVENT DATE: 20190301
